FAERS Safety Report 7680896-0 (Version None)
Quarter: 2011Q3

REPORT INFORMATION
  Report Type: 
  Country: None (occurrence: None)
  Receive Date: 20110812
  Receipt Date: 20110808
  Transmission Date: 20111222
  Serious: Yes (Other)
  Sender: FDA-Public Use
  Company Number: US-PFIZER INC-2011181339

PATIENT
  Sex: Male

DRUGS (7)
  1. ZOLPIDEM TARTRATE [Suspect]
     Dosage: 10 MG, UNK
     Route: 048
  2. DIPHENHYDRAMINE HCL [Suspect]
     Dosage: UNK
  3. XANAX [Suspect]
     Indication: DEPRESSION
     Dosage: UNK
     Dates: start: 20090301
  4. ACETONE [Suspect]
     Dosage: UNK
  5. CAFFEINE [Suspect]
     Dosage: UNK
  6. LEXAPRO [Suspect]
     Indication: DEPRESSION
     Dosage: UNK
     Dates: start: 20090301
  7. CITALOPRAM HYDROBROMIDE [Suspect]
     Dosage: UNK

REACTIONS (5)
  - AMNESIA [None]
  - HOMICIDE [None]
  - DRUG LEVEL ABOVE THERAPEUTIC [None]
  - AGITATION [None]
  - ANGER [None]
